FAERS Safety Report 6753689-6 (Version None)
Quarter: 2010Q2

REPORT INFORMATION
  Report Type: 
  Country: None (occurrence: None)
  Receive Date: 20100603
  Receipt Date: 20100525
  Transmission Date: 20101027
  Serious: Yes (Congenital Anomaly)
  Sender: FDA-Public Use
  Company Number: FR-BRISTOL-MYERS SQUIBB COMPANY-15120728

PATIENT
  Sex: Female

DRUGS (3)
  1. SUSTIVA [Suspect]
     Dosage: 1 DOSAGEFORM = 1 CAPSULE
     Route: 064
     Dates: start: 20091025, end: 20091202
  2. TRUVADA [Suspect]
     Route: 064
     Dates: start: 20091025, end: 20100421
  3. KALETRA [Suspect]
     Route: 064
     Dates: start: 20091202, end: 20100421

REACTIONS (1)
  - HYDROCEPHALUS [None]
